FAERS Safety Report 18045724 (Version 4)
Quarter: 2020Q3

REPORT INFORMATION
  Report Type: Report from Study
  Country: ES (occurrence: ES)
  Receive Date: 20200720
  Receipt Date: 20200921
  Transmission Date: 20201103
  Serious: Yes (Death, Hospitalization, Other)
  Sender: FDA-Public Use
  Company Number: ES-EXELIXIS-XL18420031321

PATIENT
  Age: 69 Year
  Sex: Female
  Weight: 71 kg

DRUGS (8)
  1. EUTIROX [Concomitant]
     Active Substance: LEVOTHYROXINE SODIUM
  2. MST [Concomitant]
  3. LOSARTAN. [Concomitant]
     Active Substance: LOSARTAN
  4. ALPRAZOLAM. [Concomitant]
     Active Substance: ALPRAZOLAM
  5. MIRTAZAPINE. [Concomitant]
     Active Substance: MIRTAZAPINE
  6. XL184 [Suspect]
     Active Substance: CABOZANTINIB
     Indication: NON-SMALL CELL LUNG CANCER
     Dosage: 60 MG, QD
     Route: 048
     Dates: start: 20200602, end: 20200713
  7. SALBUTAMOL [Concomitant]
     Active Substance: ALBUTEROL
  8. LORAZEPAM. [Concomitant]
     Active Substance: LORAZEPAM

REACTIONS (1)
  - Leukoencephalopathy [Fatal]

NARRATIVE: CASE EVENT DATE: 20200714
